FAERS Safety Report 6103982-5 (Version None)
Quarter: 2009Q1

REPORT INFORMATION
  Report Type: 
  Country: None (occurrence: None)
  Receive Date: 20090227
  Receipt Date: 20090216
  Transmission Date: 20090719
  Serious: Yes (Hospitalization)
  Sender: FDA-Public Use
  Company Number: 20085807

PATIENT
  Sex: Male

DRUGS (2)
  1. BACLOFEN [Suspect]
     Indication: AMYOTROPHIC LATERAL SCLEROSIS
     Dosage: 180 MCG, DAILY, INTRATHECAL
     Route: 037
     Dates: start: 20070823
  2. DIAZEPAM [Concomitant]

REACTIONS (3)
  - DISEASE PROGRESSION [None]
  - DYSPHAGIA [None]
  - GASTROINTESTINAL FISTULA [None]
